FAERS Safety Report 10182377 (Version 1)
Quarter: 2014Q2

REPORT INFORMATION
  Report Type: Spontaneous
  Country: US (occurrence: None)
  Receive Date: 20140519
  Receipt Date: 20140519
  Transmission Date: 20141212
  Serious: Yes (Other)
  Sender: FDA-Public Use
  Company Number: None

PATIENT
  Sex: Female
  Weight: 163.3 kg

DRUGS (9)
  1. LEVOTHYROXINE SODIUM [Suspect]
     Indication: THYROID DISORDER
     Dosage: 125MG?1 PILL?AM ?BY MOUTH
     Route: 048
     Dates: start: 20131107, end: 20131207
  2. LAMICTAL [Concomitant]
  3. PLAVIX [Concomitant]
  4. SYNTHROID [Concomitant]
  5. NIFEDIPINE [Concomitant]
  6. PRVASTATIN [Concomitant]
  7. ASPIRIN [Concomitant]
  8. VITAMIN D [Concomitant]
  9. ACIDOPHILUS [Concomitant]

REACTIONS (2)
  - Convulsion [None]
  - Product substitution issue [None]
